FAERS Safety Report 10270205 (Version 1)
Quarter: 2014Q2

REPORT INFORMATION
  Report Type: Spontaneous
  Country: IT (occurrence: None)
  Receive Date: 20140627
  Receipt Date: 20140627
  Transmission Date: 20141212
  Serious: Yes (Hospitalization)
  Sender: FDA-Public Use
  Company Number: AUR-APL-2014-06823

PATIENT
  Age: 62 Year
  Sex: Female

DRUGS (1)
  1. CITALOPRAM (CITALOPRAM) UNKNOWN [Suspect]
     Indication: PRODUCT USED FOR UNKNOWN INDICATION
     Route: 048
     Dates: start: 20140306, end: 20140306

REACTIONS (5)
  - Diarrhoea [None]
  - Vomiting [None]
  - Sopor [None]
  - Drug abuse [None]
  - Intentional self-injury [None]
